FAERS Safety Report 5902501-3 (Version None)
Quarter: 2008Q3

REPORT INFORMATION
  Report Type: 
  Country: None (occurrence: None)
  Receive Date: 20080929
  Receipt Date: 20080919
  Transmission Date: 20090109
  Serious: Yes (Hospitalization)
  Sender: FDA-Public Use
  Company Number: DE-ABBOTT-08P-062-0449023-00

PATIENT
  Age: 44 Year
  Sex: Male
  Weight: 104 kg

DRUGS (8)
  1. HUMIRA [Suspect]
     Indication: CROHN'S DISEASE
     Route: 058
     Dates: start: 20070101
  2. HUMIRA [Suspect]
     Indication: COLITIS
     Route: 058
  3. HUMIRA [Suspect]
     Route: 058
     Dates: end: 20080101
  4. HUMIRA [Suspect]
     Route: 058
     Dates: start: 20080601
  5. AZATHIOPRINE [Concomitant]
     Indication: CROHN'S DISEASE
     Route: 048
  6. GLUCOCORTICOIDS [Concomitant]
     Indication: CROHN'S DISEASE
  7. PREDNISOLONE SODIUM PHOSPHATE [Concomitant]
     Indication: COLITIS
     Route: 048
  8. CALCIUM D3 [Concomitant]
     Indication: DRUG USE FOR UNKNOWN INDICATION

REACTIONS (5)
  - ABDOMINAL PAIN [None]
  - CONVULSION [None]
  - HYPERHIDROSIS [None]
  - INFECTION [None]
  - SURGERY [None]
